FAERS Safety Report 5045721-5 (Version None)
Quarter: 2006Q3

REPORT INFORMATION
  Report Type: 
  Country: None (occurrence: None)
  Receive Date: 20060710
  Receipt Date: 20060627
  Transmission Date: 20061208
  Serious: Yes (Other)
  Sender: FDA-Public Use
  Company Number: PHNU2006DE02414

PATIENT
  Age: 69 Year
  Sex: Male

DRUGS (3)
  1. LOCOL [Suspect]
     Dates: end: 20051101
  2. CERTICAN [Suspect]
  3. PRAVASTATIN [Concomitant]
     Dates: start: 20051101

REACTIONS (5)
  - BLOOD CREATINE PHOSPHOKINASE INCREASED [None]
  - BONE PAIN [None]
  - MUSCLE ATROPHY [None]
  - MYALGIA [None]
  - MYOSITIS [None]
